FAERS Safety Report 25353542 (Version 1)
Quarter: 2025Q2

REPORT INFORMATION
  Report Type: Spontaneous
  Country: US (occurrence: US)
  Receive Date: 20250523
  Receipt Date: 20250523
  Transmission Date: 20250717
  Serious: No
  Sender: ARCUTIS
  Company Number: US-ARCUTIS BIOTHERAPEUTICS INC-2025AER000078

PATIENT
  Age: 11 Year
  Sex: Male
  Weight: 49.887 kg

DRUGS (1)
  1. ZORYVE [Suspect]
     Active Substance: ROFLUMILAST
     Indication: Product used for unknown indication
     Route: 061
     Dates: start: 20250207

REACTIONS (6)
  - Feeling cold [Unknown]
  - Nasopharyngitis [Unknown]
  - Illness [Unknown]
  - Nausea [Unknown]
  - Headache [Unknown]
  - Prescription drug used without a prescription [Unknown]

NARRATIVE: CASE EVENT DATE: 20250207
